FAERS Safety Report 8170116-5 (Version None)
Quarter: 2012Q1

REPORT INFORMATION
  Report Type: 
  Country: None (occurrence: None)
  Receive Date: 20120228
  Receipt Date: 20120215
  Transmission Date: 20120608
  Serious: Yes (Hospitalization, Other)
  Sender: FDA-Public Use
  Company Number: PHEH2012US000652

PATIENT
  Sex: Female
  Weight: 68.027 kg

DRUGS (16)
  1. TASIGNA [Suspect]
     Dosage: 400 MG, DAILY
     Route: 048
     Dates: start: 20060401
  2. STEROIDS [Concomitant]
  3. TASIGNA [Suspect]
     Indication: CHRONIC MYELOID LEUKAEMIA
     Dosage: 400 MG, BID
     Route: 048
  4. VITAMIN B-12 [Concomitant]
     Route: 048
  5. ASCORBIC ACID [Concomitant]
     Route: 048
  6. BACLOFEN [Concomitant]
     Dosage: 10 MG, TID
     Route: 048
  7. FISH OIL [Concomitant]
     Dosage: 1 DF, DAILY
     Route: 048
  8. NEURONTIN [Concomitant]
     Route: 048
  9. VERSED [Concomitant]
     Dosage: 4 MG, UNK
  10. CLONAZEPAM [Concomitant]
     Dosage: 0.5 MG AT BED TIME
     Route: 048
  11. TASIGNA [Suspect]
     Dosage: 150 MG, BID
     Route: 048
     Dates: start: 20120110
  12. DEMEROL [Concomitant]
     Dosage: 100 MG,
  13. TASIGNA [Suspect]
     Dosage: 400 MG, DAILY
     Route: 048
     Dates: start: 20100207
  14. TASIGNA [Suspect]
     Dosage: 200 MG, BID
     Route: 048
     Dates: start: 20100615
  15. VITAMIN B1 TAB [Concomitant]
     Route: 048
  16. MILK THISTLE [Concomitant]
     Route: 048

REACTIONS (7)
  - FAECAL INCONTINENCE [None]
  - DIVERTICULUM [None]
  - PANCREATITIS [None]
  - PELVIC PAIN [None]
  - HAEMATOCHEZIA [None]
  - GASTROINTESTINAL HAEMORRHAGE [None]
  - ABDOMINAL PAIN [None]
